FAERS Safety Report 4553271-5 (Version None)
Quarter: 2005Q1

REPORT INFORMATION
  Report Type: 
  Country: None (occurrence: None)
  Receive Date: 20050113
  Receipt Date: 20041228
  Transmission Date: 20050727
  Serious: Yes (Hospitalization)
  Sender: FDA-Public Use
  Company Number: DSA_25545_2004

PATIENT
  Age: 21 Year
  Sex: Female

DRUGS (2)
  1. LORAZEPAM [Suspect]
     Dosage: 40 MG ONCE PO
     Route: 048
     Dates: start: 20041222, end: 20041222
  2. EUVEGAL [Suspect]
     Dosage: DF ONCE PO
     Route: 048
     Dates: start: 20041222, end: 20041222

REACTIONS (3)
  - INTENTIONAL MISUSE [None]
  - MYDRIASIS [None]
  - SOMNOLENCE [None]
